FAERS Safety Report 23711476 (Version 3)
Quarter: 2024Q3

REPORT INFORMATION
  Report Type: Report from Study
  Country: CA (occurrence: CA)
  Receive Date: 20240405
  Receipt Date: 20240715
  Transmission Date: 20241017
  Serious: Yes (Hospitalization)
  Sender: CSL BEHRING
  Company Number: CA-BEH-2024170299

PATIENT
  Age: 74 Year
  Sex: Female

DRUGS (1)
  1. HIZENTRA [Suspect]
     Active Substance: HUMAN IMMUNOGLOBULIN G
     Indication: Secondary immunodeficiency
     Dosage: 10 G, QW
     Route: 065
     Dates: start: 20140729

REACTIONS (8)
  - Chest pain [Unknown]
  - Hospitalisation [Unknown]
  - Asthenia [Unknown]
  - Chronic obstructive pulmonary disease [Unknown]
  - Mobility decreased [Unknown]
  - Product dose omission in error [Unknown]
  - Product packaging difficult to open [Unknown]
  - Asthenia [Unknown]

NARRATIVE: CASE EVENT DATE: 20240101
